FAERS Safety Report 10159714 (Version 1)
Quarter: 2014Q2

REPORT INFORMATION
  Report Type: Spontaneous
  Country: FR (occurrence: FR)
  Receive Date: 20140508
  Receipt Date: 20140508
  Transmission Date: 20141212
  Serious: Yes (Hospitalization)
  Sender: FDA-Public Use
  Company Number: FR-SA-2014SA054285

PATIENT
  Age: 81 Year
  Sex: Female

DRUGS (13)
  1. DEXAMETHASONE [Suspect]
     Indication: PRODUCT USED FOR UNKNOWN INDICATION
     Route: 042
     Dates: start: 201312, end: 20140114
  2. CALCIPARINE [Suspect]
     Indication: PRODUCT USED FOR UNKNOWN INDICATION
     Route: 058
  3. LASILIX [Suspect]
     Indication: PRODUCT USED FOR UNKNOWN INDICATION
     Route: 048
     Dates: start: 20140117
  4. VELCADE [Suspect]
     Indication: PRODUCT USED FOR UNKNOWN INDICATION
     Route: 042
     Dates: start: 201312, end: 20140114
  5. ENDOXAN [Suspect]
     Indication: PRODUCT USED FOR UNKNOWN INDICATION
     Route: 042
     Dates: start: 201312, end: 20140114
  6. TRIFLUCAN [Suspect]
     Indication: PRODUCT USED FOR UNKNOWN INDICATION
     Route: 048
     Dates: start: 20140117
  7. ONE-ALPHA [Concomitant]
     Dosage: STRENGTH: 0.5 MCG
     Route: 048
  8. ZELITREX [Concomitant]
     Route: 048
  9. ARANESP [Concomitant]
     Dosage: STRENGTH: 50 MCG
     Route: 042
  10. BACTRIM FORTE [Concomitant]
     Dosage: DOSE:0.5 UNIT(S)
     Route: 048
  11. DIFFU K [Concomitant]
     Route: 048
  12. VITAMIN B6 [Concomitant]
  13. PARACETAMOL [Concomitant]
     Route: 048

REACTIONS (1)
  - Febrile bone marrow aplasia [Recovered/Resolved]
